FAERS Safety Report 13334550 (Version 1)
Quarter: 2017Q1

REPORT INFORMATION
  Report Type: Spontaneous
  Country: FR (occurrence: FR)
  Receive Date: 20170314
  Receipt Date: 20170314
  Transmission Date: 20170428
  Serious: Yes (Hospitalization)
  Sender: FDA-Public Use
  Company Number: FR-AKORN PHARMACEUTICALS-2017AKN00264

PATIENT
  Age: 80 Year

DRUGS (12)
  1. RANITIDINE. [Concomitant]
     Active Substance: RANITIDINE
     Route: 065
  2. ROSUVASTATINE [Concomitant]
     Active Substance: ROSUVASTATIN
     Route: 065
  3. NICORANDIL [Concomitant]
     Active Substance: NICORANDIL
     Route: 065
  4. CLOPIDOGREL [Concomitant]
     Active Substance: CLOPIDOGREL BISULFATE
     Route: 065
  5. ERYTHROMYCIN. [Suspect]
     Active Substance: ERYTHROMYCIN
     Indication: IMPAIRED GASTRIC EMPTYING
     Route: 065
  6. PREGABALINE [Concomitant]
     Active Substance: PREGABALIN
     Route: 065
  7. RAMIPRIL. [Concomitant]
     Active Substance: RAMIPRIL
     Route: 065
  8. IMATINIB [Suspect]
     Active Substance: IMATINIB
     Dosage: 400 MG, 1X/DAY
     Route: 065
     Dates: start: 2004
  9. ERYTHROPOETIN [Concomitant]
     Active Substance: ERYTHROPOIETIN
     Route: 065
  10. NEBIVOLOL. [Concomitant]
     Active Substance: NEBIVOLOL
     Route: 065
  11. INSULIN [Concomitant]
     Active Substance: INSULIN NOS
     Route: 065
  12. FUROSEMIDE. [Concomitant]
     Active Substance: FUROSEMIDE
     Route: 065

REACTIONS (2)
  - Palmar-plantar erythrodysaesthesia syndrome [Unknown]
  - Drug interaction [Unknown]
